FAERS Safety Report 12353028 (Version 2)
Quarter: 2016Q2

REPORT INFORMATION
  Report Type: Report from Study
  Country: US (occurrence: US)
  Receive Date: 20160510
  Receipt Date: 20160517
  Transmission Date: 20160815
  Serious: Yes (Hospitalization, Other)
  Sender: FDA-Public Use
  Company Number: US-ABBVIE-16P-163-1624234-00

PATIENT
  Age: 45 Year
  Sex: Female
  Weight: 99.43 kg

DRUGS (2)
  1. RIBAVIRIN. [Concomitant]
     Active Substance: RIBAVIRIN
     Indication: HEPATITIS C
  2. VIEKIRA PAK [Suspect]
     Active Substance: DASABUVIR\OMBITASVIR\PARITAPREVIR\RITONAVIR
     Indication: HEPATITIS C
     Dosage: AM + PM
     Route: 048
     Dates: start: 20160401

REACTIONS (6)
  - Anxiety [Recovered/Resolved]
  - Depression [Unknown]
  - Chest pain [Recovered/Resolved]
  - Depressed mood [Recovering/Resolving]
  - Decreased interest [Recovering/Resolving]
  - Dyspnoea [Recovered/Resolved]

NARRATIVE: CASE EVENT DATE: 201604
